FAERS Safety Report 7587118-X (Version None)
Quarter: 2011Q3

REPORT INFORMATION
  Report Type: 
  Country: None (occurrence: None)
  Receive Date: 20110701
  Receipt Date: 20110628
  Transmission Date: 20111222
  Serious: Yes (Other)
  Sender: FDA-Public Use
  Company Number: PHHY2011CA44527

PATIENT
  Sex: Female

DRUGS (3)
  1. SANDOSTATIN LAR [Suspect]
     Indication: NEUROENDOCRINE TUMOUR
     Dosage: 30 MG, EVERY 4 WEEKS
     Route: 030
     Dates: start: 20080619
  2. SANDOSTATIN LAR [Suspect]
     Dosage: 30 MG, EVERY 4 WEEKS
     Route: 030
     Dates: end: 20110102
  3. AFINITOR [Suspect]
     Indication: NEUROENDOCRINE TUMOUR
     Dosage: 10 MG, EVERY DAY
     Route: 048
     Dates: start: 20101123, end: 20110301

REACTIONS (15)
  - DIABETES MELLITUS [None]
  - BLOOD GLUCOSE INCREASED [None]
  - FATIGUE [None]
  - BLOOD CHOLESTEROL INCREASED [None]
  - ANAEMIA [None]
  - DRY MOUTH [None]
  - DYSGEUSIA [None]
  - NAIL DISORDER [None]
  - EPISTAXIS [None]
  - OROPHARYNGEAL PAIN [None]
  - WEIGHT DECREASED [None]
  - DECREASED APPETITE [None]
  - ODYNOPHAGIA [None]
  - CHILLS [None]
  - NASAL DRYNESS [None]
